FAERS Safety Report 7414100-5 (Version None)
Quarter: 2011Q2

REPORT INFORMATION
  Report Type: 
  Country: None (occurrence: None)
  Receive Date: 20110411
  Receipt Date: 20110411
  Transmission Date: 20111010
  Serious: No
  Sender: FDA-Public Use
  Company Number: None

PATIENT

DRUGS (2)
  1. DEXAMETHASONE 1.5MG TAB [Suspect]
  2. Z-PAK 250MG TABLET PFIZER US PHARMACEUTICALS [Suspect]

REACTIONS (2)
  - PRODUCT LABEL CONFUSION [None]
  - MEDICATION ERROR [None]
